FAERS Safety Report 6860479-2 (Version None)
Quarter: 2010Q3

REPORT INFORMATION
  Report Type: 
  Country: None (occurrence: None)
  Receive Date: 20100720
  Receipt Date: 20100712
  Transmission Date: 20110219
  Serious: Yes (Hospitalization)
  Sender: FDA-Public Use
  Company Number: A0815821A

PATIENT
  Age: 62 Year
  Sex: Male

DRUGS (11)
  1. AVANDIA [Suspect]
     Indication: DIABETES MELLITUS
     Route: 048
     Dates: start: 20050101, end: 20080101
  2. AVANDAMET [Suspect]
     Indication: DIABETES MELLITUS
     Route: 048
     Dates: start: 20070602, end: 20080101
  3. ZETIA [Concomitant]
  4. ISORDIL [Concomitant]
  5. AMARYL [Concomitant]
  6. COREG [Concomitant]
  7. DIGOXIN [Concomitant]
  8. LISINOPRIL [Concomitant]
  9. LASIX [Concomitant]
  10. ASPIRIN [Concomitant]
  11. METFORMIN HCL [Concomitant]
     Dates: end: 20080701

REACTIONS (7)
  - ARTERIAL DISORDER [None]
  - CARDIOVASCULAR DISORDER [None]
  - CEREBROVASCULAR ACCIDENT [None]
  - CORONARY ARTERY DISEASE [None]
  - HYPERTENSION [None]
  - MOOD ALTERED [None]
  - MYOCARDIAL INFARCTION [None]
